FAERS Safety Report 6510102-1 (Version None)
Quarter: 2009Q4

REPORT INFORMATION
  Report Type: 
  Country: None (occurrence: None)
  Receive Date: 20091222
  Receipt Date: 20091110
  Transmission Date: 20100525
  Serious: No
  Sender: FDA-Public Use
  Company Number: US-BAUSCH-2009BL005927

PATIENT
  Age: 78 Year
  Sex: Female

DRUGS (4)
  1. ALAWAY [Suspect]
     Indication: SEASONAL ALLERGY
     Route: 047
     Dates: start: 20091110, end: 20091110
  2. REFRESH [Concomitant]
  3. LIPITOR [Concomitant]
     Indication: BLOOD CHOLESTEROL INCREASED
  4. VITAMINS [Concomitant]

REACTIONS (2)
  - EXPIRED DRUG ADMINISTERED [None]
  - INSTILLATION SITE IRRITATION [None]
